FAERS Safety Report 15207357 (Version 1)
Quarter: 2018Q3

REPORT INFORMATION
  Report Type: Spontaneous
  Country: US (occurrence: US)
  Receive Date: 20180727
  Receipt Date: 20180727
  Transmission Date: 20181010
  Serious: Yes (Hospitalization)
  Sender: FDA-Public Use
  Company Number: PHHY2018US049237

PATIENT
  Age: 9 Year
  Sex: Male

DRUGS (1)
  1. ONDANSETRON [Suspect]
     Active Substance: ONDANSETRON
     Indication: GASTROENTERITIS
     Dosage: 0.15 MG/KG, UNK
     Route: 042

REACTIONS (4)
  - Product use in unapproved indication [Unknown]
  - Dehydration [Unknown]
  - Electrocardiogram QT prolonged [Unknown]
  - Hypoglycaemia [Unknown]
